FAERS Safety Report 24449002 (Version 1)
Quarter: 2024Q4

REPORT INFORMATION
  Report Type: Spontaneous
  Country: US (occurrence: US)
  Receive Date: 20241017
  Receipt Date: 20241017
  Transmission Date: 20250115
  Serious: No
  Sender: PADAGIS
  Company Number: US-PADAGIS-2024PAD01616

PATIENT

DRUGS (1)
  1. ECONAZOLE NITRATE [Suspect]
     Active Substance: ECONAZOLE NITRATE
     Indication: Rash
     Dosage: UNK, BID
     Route: 065

REACTIONS (3)
  - Rash [Unknown]
  - Therapy partial responder [Unknown]
  - Product use in unapproved indication [Unknown]
